FAERS Safety Report 19834815 (Version 2)
Quarter: 2021Q3

REPORT INFORMATION
  Report Type: Report from Study
  Country: None (occurrence: US)
  Receive Date: 20210915
  Receipt Date: 20210921
  Transmission Date: 20211014
  Serious: Yes (Hospitalization)
  Sender: FDA-Public Use
  Company Number: US-ABBVIE-21K-163-4076278-00

PATIENT
  Sex: Female
  Weight: 69.01 kg

DRUGS (3)
  1. MODERNA COVID?19 VACCINE [Concomitant]
     Active Substance: CX-024414
     Indication: COVID-19 IMMUNISATION
     Route: 030
     Dates: start: 20210323, end: 20210323
  2. MODERNA COVID?19 VACCINE [Concomitant]
     Active Substance: CX-024414
     Route: 030
     Dates: start: 20210420, end: 20210420
  3. HUMIRA [Suspect]
     Active Substance: ADALIMUMAB
     Indication: CROHN^S DISEASE
     Dosage: CITRATE FREE
     Route: 058
     Dates: start: 20200430

REACTIONS (4)
  - Crohn^s disease [Recovered/Resolved]
  - Intervertebral disc protrusion [Recovering/Resolving]
  - Radiculopathy [Unknown]
  - Lumbosacral plexus injury [Unknown]

NARRATIVE: CASE EVENT DATE: 2021
